FAERS Safety Report 9268754 (Version 1)
Quarter: 2013Q2

REPORT INFORMATION
  Report Type: Spontaneous
  Country: US (occurrence: US)
  Receive Date: 20130502
  Receipt Date: 20130502
  Transmission Date: 20140414
  Serious: No
  Sender: FDA-Public Use
  Company Number: US-ALEXION-A201300374

PATIENT
  Sex: Female
  Weight: 84.35 kg

DRUGS (5)
  1. SOLIRIS 300MG [Suspect]
     Indication: PAROXYSMAL NOCTURNAL HAEMOGLOBINURIA
     Dosage: UNK
     Route: 042
     Dates: start: 2008, end: 20130104
  2. SOLIRIS 300MG [Suspect]
     Dosage: UNK
     Route: 042
     Dates: start: 20130307
  3. ADDERALL XR [Concomitant]
     Dosage: 20 MG, QD
     Route: 048
  4. VITAMIN B12 NOS [Concomitant]
     Dosage: 1000 ?G, QD
     Route: 048
  5. VITAMIN D [Concomitant]
     Dosage: 50000 IU, QD
     Route: 048

REACTIONS (6)
  - Chromaturia [Not Recovered/Not Resolved]
  - Malaise [Not Recovered/Not Resolved]
  - Cold sweat [Unknown]
  - Dyspnoea exertional [Unknown]
  - Fatigue [Not Recovered/Not Resolved]
  - Pyrexia [Not Recovered/Not Resolved]
